FAERS Safety Report 9739664 (Version 1)
Quarter: 2013Q4

REPORT INFORMATION
  Report Type: Spontaneous
  Country: US (occurrence: US)
  Receive Date: 20131209
  Receipt Date: 20131209
  Transmission Date: 20140711
  Serious: No
  Sender: FDA-Public Use
  Company Number: US-BAYER-2013-128849

PATIENT
  Sex: Female

DRUGS (1)
  1. YASMIN [Suspect]
     Indication: MIGRAINE
     Dosage: UNK
     Dates: start: 2007

REACTIONS (5)
  - Off label use [None]
  - Incorrect drug administration duration [None]
  - Asthenia [None]
  - Drug withdrawal headache [None]
  - Withdrawal syndrome [None]
